FAERS Safety Report 7271936-1 (Version None)
Quarter: 2011Q1

REPORT INFORMATION
  Report Type: 
  Country: None (occurrence: None)
  Receive Date: 20110203
  Receipt Date: 20110131
  Transmission Date: 20110831
  Serious: Yes (Life-Threatening)
  Sender: FDA-Public Use
  Company Number: TR-SANOFI-AVENTIS-2011SA004935

PATIENT
  Age: 60 Year
  Sex: Male

DRUGS (8)
  1. 5-FU [Concomitant]
     Indication: COLON CANCER
     Route: 042
     Dates: start: 20100701, end: 20100701
  2. 5-FU [Concomitant]
     Route: 042
     Dates: start: 20110101, end: 20110101
  3. FOLINIC ACID [Concomitant]
     Indication: COLON CANCER
     Route: 042
     Dates: start: 20100701, end: 20100701
  4. ELOXATIN [Suspect]
     Route: 042
     Dates: start: 20110101, end: 20110101
  5. ELOXATIN [Suspect]
     Indication: COLON CANCER
     Route: 042
     Dates: start: 20100701, end: 20100701
  6. ELOXATIN [Suspect]
     Route: 042
     Dates: start: 20100701, end: 20100701
  7. ELOXATIN [Suspect]
     Route: 042
     Dates: start: 20110101, end: 20110101
  8. FOLINIC ACID [Concomitant]
     Route: 042
     Dates: start: 20110101, end: 20110101

REACTIONS (3)
  - HYPOTENSION [None]
  - RESPIRATORY ARREST [None]
  - URINARY INCONTINENCE [None]
